FAERS Safety Report 24570963 (Version 1)
Quarter: 2024Q4

REPORT INFORMATION
  Report Type: Spontaneous
  Country: US (occurrence: US)
  Receive Date: 20241101
  Receipt Date: 20241101
  Transmission Date: 20250115
  Serious: No
  Sender: PAREXEL
  Company Number: US-STEMLINE THERAPEUTICS, INC-2024-STML-US004517

PATIENT

DRUGS (1)
  1. ORSERDU [Suspect]
     Active Substance: ELACESTRANT
     Indication: Product used for unknown indication
     Dosage: 345 MG, CYCLIC (DAY 1 TO DAY 28 OF A 28 DAY CYCLE)
     Route: 065
     Dates: start: 20240812

REACTIONS (6)
  - Chromaturia [Unknown]
  - Myalgia [Unknown]
  - Gait inability [Unknown]
  - Bone pain [Unknown]
  - Headache [Unknown]
  - Fatigue [Unknown]
